FAERS Safety Report 11705896 (Version 1)
Quarter: 2015Q4

REPORT INFORMATION
  Report Type: Spontaneous
  Country: US (occurrence: US)
  Receive Date: 20151106
  Receipt Date: 20151106
  Transmission Date: 20160304
  Serious: No
  Sender: FDA-Public Use
  Company Number: US-WARNER CHILCOTT, LLC-1043871

PATIENT
  Sex: Female

DRUGS (4)
  1. ENABLEX [Suspect]
     Active Substance: DARIFENACIN\DARIFENACIN HYDROBROMIDE
     Indication: NEUROGENIC BLADDER
     Dates: end: 20150217
  2. ANTIDEPRESSANTS [Concomitant]
     Active Substance: UNSPECIFIED INGREDIENT
  3. ANTIPSYCHOTICS [Concomitant]
     Active Substance: UNSPECIFIED INGREDIENT
  4. ANTIHYPERTENSIVES [Concomitant]
     Active Substance: UNSPECIFIED INGREDIENT

REACTIONS (2)
  - Influenza like illness [Unknown]
  - Chills [Recovered/Resolved]
